FAERS Safety Report 20912490 (Version 2)
Quarter: 2022Q2

REPORT INFORMATION
  Report Type: Report from Study
  Country: CN (occurrence: CN)
  Receive Date: 20220603
  Receipt Date: 20220617
  Transmission Date: 20220720
  Serious: Yes (Hospitalization)
  Sender: FDA-Public Use
  Company Number: CN-JNJFOC-20220559696

PATIENT
  Age: 48 Year
  Sex: Male
  Weight: 59 kg

DRUGS (1)
  1. AMIVANTAMAB [Suspect]
     Active Substance: AMIVANTAMAB
     Indication: Non-small cell lung cancer
     Dates: start: 20210511, end: 20220513

REACTIONS (3)
  - Decreased appetite [Recovering/Resolving]
  - Anaemia [Recovering/Resolving]
  - Device related infection [Recovered/Resolved]

NARRATIVE: CASE EVENT DATE: 20220527
